FAERS Safety Report 5450052-5 (Version None)
Quarter: 2007Q3

REPORT INFORMATION
  Report Type: 
  Country: None (occurrence: None)
  Receive Date: 20070912
  Receipt Date: 20070910
  Transmission Date: 20080115
  Serious: Yes (Other)
  Sender: FDA-Public Use
  Company Number: A0678040A

PATIENT

DRUGS (2)
  1. ALLI [Suspect]
     Indication: DRUG USE FOR UNKNOWN INDICATION
     Route: 048
     Dates: start: 20070817
  2. BIRTH CONTROL PILL [Concomitant]

REACTIONS (13)
  - BACK PAIN [None]
  - DRUG EFFECT DECREASED [None]
  - DYSMENORRHOEA [None]
  - FATIGUE [None]
  - FRUSTRATION [None]
  - GASTROINTESTINAL DISORDER [None]
  - IRRITABILITY [None]
  - MENORRHAGIA [None]
  - MENSTRUAL DISORDER [None]
  - NAUSEA [None]
  - OEDEMA [None]
  - RECTAL DISCHARGE [None]
  - VOMITING [None]
